FAERS Safety Report 9703025 (Version 3)
Quarter: 2014Q1

REPORT INFORMATION
  Report Type: Spontaneous
  Country: US (occurrence: US)
  Receive Date: 20131122
  Receipt Date: 20140129
  Transmission Date: 20141002
  Serious: No
  Sender: FDA-Public Use
  Company Number: US-009507513-1311USA007564

PATIENT
  Age: 20 Year
  Sex: Female
  Weight: 53.24 kg

DRUGS (5)
  1. IMPLANON [Suspect]
     Indication: CONTRACEPTION
     Dosage: 1 DF, UNK; 1 ROD
     Route: 059
     Dates: start: 20120806, end: 20131114
  2. ZOLOFT [Concomitant]
     Dosage: UNKNOWN
  3. PRILOSEC [Concomitant]
     Dosage: UNKNOWN
  4. VITAMIN B COMPLEX [Concomitant]
     Dosage: UNKNOWN
  5. ASCORBIC ACID [Concomitant]
     Dosage: UNKNOWN

REACTIONS (6)
  - Menorrhagia [Not Recovered/Not Resolved]
  - Mood altered [Not Recovered/Not Resolved]
  - Alopecia [Not Recovered/Not Resolved]
  - Weight decreased [Not Recovered/Not Resolved]
  - Pain in extremity [Unknown]
  - Device breakage [Unknown]
